FAERS Safety Report 17593119 (Version 1)
Quarter: 2020Q1

REPORT INFORMATION
  Report Type: Spontaneous
  Country: CN (occurrence: CN)
  Receive Date: 20200327
  Receipt Date: 20200327
  Transmission Date: 20200409
  Serious: Yes (Hospitalization)
  Sender: FDA-Public Use
  Company Number: CN-PFIZER INC-2020126357

PATIENT
  Age: 28 Year
  Sex: Female
  Weight: 47.1 kg

DRUGS (2)
  1. CRIZOTINIB [Suspect]
     Active Substance: CRIZOTINIB
     Indication: CHEMOTHERAPY
     Dosage: 250 MG, 2X/DAY
     Route: 048
     Dates: start: 20200203, end: 20200214
  2. PARIET [Concomitant]
     Active Substance: RABEPRAZOLE SODIUM
     Indication: THERAPEUTIC PROCEDURE
     Dosage: 20 MG, 1X/DAY
     Route: 048
     Dates: start: 20200203, end: 20200214

REACTIONS (2)
  - Neutrophil count decreased [Recovered/Resolved]
  - White blood cell count decreased [Recovered/Resolved]

NARRATIVE: CASE EVENT DATE: 20200317
